FAERS Safety Report 11672568 (Version 1)
Quarter: 2015Q4

REPORT INFORMATION
  Report Type: Spontaneous
  Country: US (occurrence: None)
  Receive Date: 20151026
  Receipt Date: 20151026
  Transmission Date: 20160304
  Serious: Yes (Life-Threatening, Hospitalization, Disabling)
  Sender: FDA-Public Use
  Company Number: None

PATIENT
  Age: 66 Year
  Sex: Male
  Weight: 109.45 kg

DRUGS (4)
  1. ROSUVASTATIN [Suspect]
     Active Substance: ROSUVASTATIN
     Indication: HYPERLIPIDAEMIA
     Route: 048
     Dates: start: 20150906, end: 20150910
  2. GEMFIBROZIL. [Suspect]
     Active Substance: GEMFIBROZIL
     Indication: HYPERLIPIDAEMIA
     Route: 048
     Dates: start: 20150906, end: 20150910
  3. ROSUVASTATIN [Suspect]
     Active Substance: ROSUVASTATIN
     Indication: HIV INFECTION
     Route: 048
     Dates: start: 20150906, end: 20150910
  4. GEMFIBROZIL. [Suspect]
     Active Substance: GEMFIBROZIL
     Indication: HIV INFECTION
     Route: 048
     Dates: start: 20150906, end: 20150910

REACTIONS (10)
  - Fall [None]
  - Head injury [None]
  - Dialysis [None]
  - Rhabdomyolysis [None]
  - Drug interaction [None]
  - Hypophagia [None]
  - Asthenia [None]
  - Pneumonia [None]
  - Fluid intake reduced [None]
  - Acute kidney injury [None]

NARRATIVE: CASE EVENT DATE: 20150910
